FAERS Safety Report 14929259 (Version 1)
Quarter: 2018Q2

REPORT INFORMATION
  Report Type: Report from Study
  Country: IT (occurrence: IT)
  Receive Date: 20180523
  Receipt Date: 20180523
  Transmission Date: 20180711
  Serious: Yes (Hospitalization)
  Sender: FDA-Public Use
  Company Number: IT-BAYER-2018-094191

PATIENT
  Age: 49 Year
  Sex: Male

DRUGS (1)
  1. ASPIRINA [Suspect]
     Active Substance: ASPIRIN
     Indication: PAIN
     Dosage: 1 DF, PRN
     Route: 048
     Dates: start: 20180309, end: 20180309

REACTIONS (2)
  - Palatal oedema [Recovered/Resolved]
  - Dyspnoea [Recovered/Resolved]

NARRATIVE: CASE EVENT DATE: 20180310
